FAERS Safety Report 22362603 (Version 1)
Quarter: 2023Q2

REPORT INFORMATION
  Report Type: Spontaneous
  Country: US (occurrence: US)
  Receive Date: 20230524
  Receipt Date: 20230524
  Transmission Date: 20230722
  Serious: No
  Sender: FDA-Public Use
  Company Number: US-009507513-2305USA004873

PATIENT
  Age: 27 Year
  Sex: Female

DRUGS (8)
  1. KEYTRUDA [Suspect]
     Active Substance: PEMBROLIZUMAB
     Indication: Paraganglion neoplasm
     Dosage: UNK
     Route: 065
     Dates: start: 2016
  2. KEYTRUDA [Suspect]
     Active Substance: PEMBROLIZUMAB
     Indication: Metastasis
  3. CYCLOPHOSPHAMIDE [Concomitant]
     Active Substance: CYCLOPHOSPHAMIDE
     Indication: Paraganglion neoplasm
     Dosage: UNK
     Dates: start: 2016
  4. CYCLOPHOSPHAMIDE [Concomitant]
     Active Substance: CYCLOPHOSPHAMIDE
     Indication: Metastasis
  5. VINCRISTINE [Concomitant]
     Active Substance: VINCRISTINE
     Indication: Paraganglion neoplasm
  6. VINCRISTINE [Concomitant]
     Active Substance: VINCRISTINE
     Indication: Metastasis
  7. DACARBAZINE [Concomitant]
     Active Substance: DACARBAZINE
     Indication: Paraganglion neoplasm
  8. DACARBAZINE [Concomitant]
     Active Substance: DACARBAZINE
     Indication: Metastasis

REACTIONS (1)
  - Product use in unapproved indication [Unknown]
